FAERS Safety Report 26192719 (Version 1)
Quarter: 2025Q4

REPORT INFORMATION
  Report Type: Report from Study
  Country: EU (occurrence: EU)
  Receive Date: 20251223
  Receipt Date: 20251223
  Transmission Date: 20260118
  Serious: No
  Sender: MERCK SHARP & DOHME LLC
  Company Number: EU-009507513-2362306

PATIENT
  Sex: Female

DRUGS (1)
  1. MOLNUPIRAVIR [Suspect]
     Active Substance: MOLNUPIRAVIR
     Indication: COVID-19
     Dosage: PATIENT TOOK FIRST DOSE ON 15-DEC-2025 ANOTHER DOSE OF 4 CAPSULES ACCIDENTALLY AFTER 7 HOURS, BUT...
     Route: 048
     Dates: start: 20251215

REACTIONS (6)
  - Inappropriate schedule of product administration [Unknown]
  - Rhinorrhoea [Unknown]
  - Tonsillar hypertrophy [Unknown]
  - Dysphagia [Unknown]
  - Suffocation feeling [Unknown]
  - Throat irritation [Unknown]

NARRATIVE: CASE EVENT DATE: 20251215
